FAERS Safety Report 5741136-2 (Version None)
Quarter: 2008Q2

REPORT INFORMATION
  Report Type: 
  Country: None (occurrence: None)
  Receive Date: 20080516
  Receipt Date: 20080508
  Transmission Date: 20081010
  Serious: Yes (Hospitalization, Other)
  Sender: FDA-Public Use
  Company Number: US-PFIZER INC-2008040297

PATIENT
  Sex: Female
  Weight: 48 kg

DRUGS (2)
  1. CHANTIX [Suspect]
     Indication: SMOKING CESSATION THERAPY
     Route: 048
     Dates: start: 20070801, end: 20070801
  2. ULTRAM [Concomitant]
     Indication: FIBROMYALGIA

REACTIONS (12)
  - ABDOMINAL PAIN [None]
  - ANXIETY [None]
  - CONSTIPATION [None]
  - CRYING [None]
  - DISTURBANCE IN ATTENTION [None]
  - GINGIVAL BLEEDING [None]
  - INSOMNIA [None]
  - MENTAL DISORDER [None]
  - PALPITATIONS [None]
  - PSYCHOTIC DISORDER [None]
  - SKIN DISCOLOURATION [None]
  - VOMITING [None]
